FAERS Safety Report 16997742 (Version 1)
Quarter: 2019Q4

REPORT INFORMATION
  Report Type: Spontaneous
  Country: US (occurrence: US)
  Receive Date: 20190924
  Receipt Date: 20190924
  Transmission Date: 20200122
  Serious: Yes (Hospitalization)
  Sender: FDA-Public Use
  Company Number: None

PATIENT
  Age: 6 Year
  Sex: Female
  Weight: 19.3 kg

DRUGS (6)
  1. PENICILLIN [Concomitant]
     Active Substance: PENICILLIN
  2. DIAZEPAM. [Concomitant]
     Active Substance: DIAZEPAM
  3. DABRAFENIB 50MG [Suspect]
     Active Substance: DABRAFENIB
     Indication: LANGERHANS^ CELL HISTIOCYTOSIS
     Route: 048
     Dates: start: 20160222, end: 20190918
  4. ALBUTEROL. [Concomitant]
     Active Substance: ALBUTEROL
  5. KEPPRA [Suspect]
     Active Substance: LEVETIRACETAM
  6. POTASSIUM [Concomitant]
     Active Substance: POTASSIUM

REACTIONS (1)
  - Acute myeloid leukaemia [None]

NARRATIVE: CASE EVENT DATE: 20190919
